FAERS Safety Report 13480560 (Version 1)
Quarter: 2017Q2

REPORT INFORMATION
  Report Type: Report from Study
  Country: BR (occurrence: BR)
  Receive Date: 20170425
  Receipt Date: 20170425
  Transmission Date: 20170830
  Serious: Yes (Other)
  Sender: FDA-Public Use
  Company Number: BR-JNJFOC-20170421421

PATIENT
  Sex: Female
  Weight: 69 kg

DRUGS (6)
  1. SIMPONI [Suspect]
     Active Substance: GOLIMUMAB
     Indication: RHEUMATOID ARTHRITIS
     Route: 058
     Dates: start: 20131003
  2. CALCIUM [Concomitant]
     Active Substance: CALCIUM
     Route: 065
  3. CARBAMAZEPINE. [Concomitant]
     Active Substance: CARBAMAZEPINE
     Route: 065
  4. HIDANTAL [Concomitant]
     Active Substance: PHENYTOIN SODIUM
     Route: 065
  5. VITAMIN D [Concomitant]
     Active Substance: CHOLECALCIFEROL
     Route: 065
  6. COBALAMIN [Concomitant]
     Active Substance: COBALAMIN
     Route: 065

REACTIONS (4)
  - Inflammation [Unknown]
  - Abscess limb [Not Recovered/Not Resolved]
  - Arthritis [Unknown]
  - Cyst [Not Recovered/Not Resolved]
